FAERS Safety Report 6843934-0 (Version None)
Quarter: 2010Q3

REPORT INFORMATION
  Report Type: 
  Country: None (occurrence: None)
  Receive Date: 20100715
  Receipt Date: 20100625
  Transmission Date: 20110219
  Serious: Yes (Other)
  Sender: FDA-Public Use
  Company Number: BE-SANOFI-AVENTIS-2010SA040335

PATIENT
  Age: 49 Year
  Sex: Female

DRUGS (3)
  1. FLUDARABINE PHOSPHATE [Suspect]
     Route: 065
  2. CLOFARABINE [Suspect]
     Route: 065
  3. BUSULPHAN [Suspect]
     Route: 065

REACTIONS (8)
  - CHOLESTASIS [None]
  - ENCEPHALOPATHY [None]
  - ENTEROBACTER BACTERAEMIA [None]
  - ENTEROCOCCAL BACTERAEMIA [None]
  - HYPERBILIRUBINAEMIA [None]
  - PALMAR-PLANTAR ERYTHRODYSAESTHESIA SYNDROME [None]
  - PARAPARESIS [None]
  - PERIPHERAL MOTOR NEUROPATHY [None]
